FAERS Safety Report 7265884-0 (Version None)
Quarter: 2011Q1

REPORT INFORMATION
  Report Type: 
  Country: None (occurrence: None)
  Receive Date: 20110131
  Receipt Date: 20110120
  Transmission Date: 20110831
  Serious: Yes (Other)
  Sender: FDA-Public Use
  Company Number: B0690705A

PATIENT
  Sex: Female

DRUGS (2)
  1. LERCAN [Concomitant]
  2. NABUMETONE [Suspect]
     Dosage: 1G PER DAY
     Route: 048
     Dates: start: 20101119, end: 20101128

REACTIONS (2)
  - TRANSAMINASES INCREASED [None]
  - TOXIC SKIN ERUPTION [None]
